FAERS Safety Report 19310197 (Version 1)
Quarter: 2021Q2

REPORT INFORMATION
  Report Type: Spontaneous
  Country: US (occurrence: US)
  Receive Date: 20210526
  Receipt Date: 20210526
  Transmission Date: 20210717
  Serious: Yes (Death, Other)
  Sender: FDA-Public Use
  Company Number: US-SA-2021SA173438

PATIENT
  Age: 93 Year
  Sex: Female

DRUGS (1)
  1. ZANTAC [Suspect]
     Active Substance: RANITIDINE HYDROCHLORIDE
     Indication: DYSPEPSIA
     Dosage: 150 MG, QD
     Dates: start: 201001, end: 201910

REACTIONS (4)
  - Gastrointestinal carcinoma [Fatal]
  - Small intestine carcinoma [Fatal]
  - Mesenteric neoplasm [Fatal]
  - Abdominal neoplasm [Fatal]
